FAERS Safety Report 5025792-2 (Version None)
Quarter: 2006Q2

REPORT INFORMATION
  Report Type: 
  Country: None (occurrence: None)
  Receive Date: 20060427
  Receipt Date: 20050510
  Transmission Date: 20061013
  Serious: Yes (Life-Threatening, Hospitalization, Other)
  Sender: FDA-Public Use
  Company Number: 2005048862

PATIENT
  Sex: Female

DRUGS (3)
  1. ZITHROMAX [Suspect]
     Indication: SINUSITIS
  2. ALL OTHER THERAPEUTIC PRODUCTS (ALL OTHER THERAPEUTIC PRODUCTS) [Suspect]
     Indication: LACTATION DISORDER
  3. DOMPERIDONE (DOMPERIDONE) [Suspect]
     Indication: ILL-DEFINED DISORDER

REACTIONS (1)
  - ELECTROCARDIOGRAM QT PROLONGED [None]
